FAERS Safety Report 5254838-1 (Version None)
Quarter: 2007Q1

REPORT INFORMATION
  Report Type: 
  Country: None (occurrence: None)
  Receive Date: 20070305
  Receipt Date: 20070219
  Transmission Date: 20070707
  Serious: Yes (Death, Life-Threatening, Hospitalization, Other)
  Sender: FDA-Public Use
  Company Number: JP-ELI_LILLY_AND_COMPANY-US_020382774

PATIENT
  Age: 39 Year
  Sex: Male
  Weight: 61.2 kg

DRUGS (6)
  1. ZYPREXA [Suspect]
     Indication: SCHIZOPHRENIA
     Dosage: 10 MG, DAILY (1/D)
     Route: 048
     Dates: start: 20010628, end: 20020309
  2. PROTHIADEN [Concomitant]
     Indication: SLEEP DISORDER
     Dosage: 25 MG, DAILY (1/D)
     Dates: start: 19980101, end: 20020309
  3. LEVOTOMIN [Concomitant]
     Indication: SLEEP DISORDER
     Dosage: 25 MG, DAILY (1/D)
     Dates: start: 19980101, end: 20020309
  4. ROHYPNOL [Concomitant]
     Indication: SLEEP DISORDER
     Dosage: 2 MG, DAILY (1/D)
     Dates: start: 19980101, end: 20020309
  5. LIMAS [Concomitant]
     Indication: SCHIZOPHRENIA
     Dosage: 400 MG, DAILY (1/D)
     Dates: start: 19971201, end: 20020309
  6. HALCION [Concomitant]
     Indication: SLEEP DISORDER
     Dosage: 0.5 MG, DAILY (1/D)
     Dates: end: 20020309

REACTIONS (12)
  - ANOREXIA [None]
  - APALLIC SYNDROME [None]
  - DIABETIC HYPEROSMOLAR COMA [None]
  - DISSEMINATED INTRAVASCULAR COAGULATION [None]
  - NEUROLEPTIC MALIGNANT SYNDROME [None]
  - POLYDIPSIA [None]
  - RESPIRATORY TRACT INFECTION [None]
  - SHOCK [None]
  - STAPHYLOCOCCAL INFECTION [None]
  - THIRST [None]
  - URINARY TRACT INFECTION [None]
  - WEIGHT INCREASED [None]
